FAERS Safety Report 20169018 (Version 1)
Quarter: 2021Q4

REPORT INFORMATION
  Report Type: Spontaneous
  Country: US (occurrence: None)
  Receive Date: 20211210
  Receipt Date: 20211210
  Transmission Date: 20220304
  Serious: No
  Sender: FDA-Public Use
  Company Number: 2021A854186

PATIENT

DRUGS (3)
  1. CALQUENCE [Suspect]
     Active Substance: ACALABRUTINIB
     Indication: Chronic lymphocytic leukaemia
     Dosage: UNKNOWN
     Route: 048
  2. ACETAMINOPHIN WITH CAFFEINE [Concomitant]
  3. BENEFIL [Concomitant]

REACTIONS (4)
  - Headache [Unknown]
  - Abdominal pain upper [Unknown]
  - Constipation [Unknown]
  - Flatulence [Unknown]
